FAERS Safety Report 9646230 (Version 1)
Quarter: 2013Q4

REPORT INFORMATION
  Report Type: Spontaneous
  Country: FR (occurrence: FR)
  Receive Date: 20131025
  Receipt Date: 20131025
  Transmission Date: 20140711
  Serious: Yes (Life-Threatening, Hospitalization, Other)
  Sender: FDA-Public Use
  Company Number: FR-WATSON-2013-18677

PATIENT
  Age: 82 Year
  Sex: Male
  Weight: 48 kg

DRUGS (2)
  1. LIDOCAINE (UNKNOWN) [Suspect]
     Indication: LOCAL ANAESTHESIA
     Dosage: 90 MG, UNKNOWN
     Route: 049
  2. LIDOCAINE HYDROCHLORIDE 2% WITH EPINEPHRINE (WATSON LABORATORIES) [Suspect]
     Indication: LOCAL ANAESTHESIA
     Dosage: 20 ML, UNKNOWN
     Route: 049

REACTIONS (4)
  - Loss of consciousness [Recovered/Resolved]
  - Bradycardia [Recovered/Resolved]
  - Hypotension [Recovered/Resolved]
  - Clonus [Recovered/Resolved]
